FAERS Safety Report 12582215 (Version 1)
Quarter: 2016Q3

REPORT INFORMATION
  Report Type: Spontaneous
  Country: US (occurrence: None)
  Receive Date: 20160721
  Receipt Date: 20160721
  Transmission Date: 20161109
  Serious: Yes (Life-Threatening)
  Sender: FDA-Public Use
  Company Number: None

PATIENT
  Age: 7 Year
  Sex: Male
  Weight: 21.32 kg

DRUGS (2)
  1. ASMANEX [Suspect]
     Active Substance: MOMETASONE FUROATE
     Indication: ASTHMA
     Dosage: 30 INHALATION(S)
     Route: 055
     Dates: start: 20160623, end: 20160624
  2. PROAIR RESPICLICK [Suspect]
     Active Substance: ALBUTEROL SULFATE
     Indication: ASTHMA
     Dosage: 1 INHALATION(S)
     Route: 055
     Dates: start: 20160601, end: 20160624

REACTIONS (8)
  - Urticaria [None]
  - Wheezing [None]
  - Somnolence [None]
  - Documented hypersensitivity to administered product [None]
  - Vomiting [None]
  - Tremor [None]
  - Pallor [None]
  - Anaphylactic reaction [None]

NARRATIVE: CASE EVENT DATE: 20160624
